FAERS Safety Report 7333134 (Version 2)
Quarter: 2012Q4

REPORT INFORMATION
  Report Type: 
  Country: US (occurrence: US)
  Receive Date: 20100326
  Receipt Date: 20121003
  Transmission Date: 20130627
  Serious: Yes (Death)
  Sender: FDA-Public Use
  Company Number: US-MYLANLABS-2010S1004487

PATIENT
  Age: 44 Year
  Sex: Male
  Weight: 83.46 kg

DRUGS (6)
  1. FENTANYL TRANSDERMAL SYSTEM [Suspect]
     Indication: ABDOMINAL PAIN
     Route: 062
     Dates: end: 20080428
  2. OXYCODONE W/APAP [Suspect]
     Indication: ABDOMINAL PAIN
     Dates: end: 200804
  3. CLONAZEPAM [Concomitant]
  4. PROMETHAZINE [Concomitant]
  5. METFORMIN [Concomitant]
  6. INSULIN [Concomitant]

REACTIONS (2)
  - Toxicity to various agents [Fatal]
  - Overdose [Fatal]
